FAERS Safety Report 24318149 (Version 2)
Quarter: 2024Q3

REPORT INFORMATION
  Report Type: Spontaneous
  Country: US (occurrence: US)
  Receive Date: 20240913
  Receipt Date: 20240923
  Transmission Date: 20241017
  Serious: No
  Sender: LEO PHARM
  Company Number: US-LEO Pharma-373440

PATIENT
  Age: 35 Year
  Sex: Female

DRUGS (2)
  1. ADBRY [Suspect]
     Active Substance: TRALOKINUMAB-LDRM
     Indication: Dermatitis atopic
     Route: 058
  2. ADBRY [Suspect]
     Active Substance: TRALOKINUMAB-LDRM
     Indication: Dermatitis atopic
     Dosage: 4 INJECTIONS
     Route: 058
     Dates: start: 20240701

REACTIONS (2)
  - Injection site erythema [Unknown]
  - Injection site bruising [Unknown]
